FAERS Safety Report 6680959-2 (Version None)
Quarter: 2010Q2

REPORT INFORMATION
  Report Type: 
  Country: None (occurrence: None)
  Receive Date: 20100413
  Receipt Date: 20100413
  Transmission Date: 20101027
  Serious: Yes (Life-Threatening)
  Sender: FDA-Public Use
  Company Number: None

PATIENT
  Age: 45 Year
  Sex: Male
  Weight: 65.7716 kg

DRUGS (2)
  1. ALBUTEROL SULFATE AUTOHALER [Suspect]
     Indication: ASTHMA
     Dates: start: 20100401, end: 20100410
  2. PROVENTIL-HFA [Suspect]

REACTIONS (2)
  - DEVICE MALFUNCTION [None]
  - DRUG EFFECT DECREASED [None]
